FAERS Safety Report 5883345-8 (Version None)
Quarter: 2008Q3

REPORT INFORMATION
  Report Type: 
  Country: None (occurrence: None)
  Receive Date: 20080910
  Receipt Date: 20080825
  Transmission Date: 20090109
  Serious: Yes (Hospitalization, Disabling)
  Sender: FDA-Public Use
  Company Number: 8030940

PATIENT
  Age: 81 Year
  Sex: Female

DRUGS (2)
  1. THEOPHYLLINE [Suspect]
     Indication: BRONCHITIS CHRONIC
     Dosage: 400 MG /D PO
     Route: 048
     Dates: start: 20061101, end: 20070101
  2. THEOPHYLLINE [Suspect]
     Indication: BRONCHITIS CHRONIC
     Dosage: NI IV
     Route: 042
     Dates: start: 20070101

REACTIONS (11)
  - BLOOD CREATINE PHOSPHOKINASE INCREASED [None]
  - ENCEPHALOPATHY [None]
  - ENTERITIS [None]
  - INCONTINENCE [None]
  - PARALYSIS FLACCID [None]
  - PARTIAL SEIZURES [None]
  - SINUS TACHYCARDIA [None]
  - STATUS EPILEPTICUS [None]
  - VITAMIN B6 DEFICIENCY [None]
  - WHEELCHAIR USER [None]
  - WHITE BLOOD CELL COUNT INCREASED [None]
